FAERS Safety Report 8883039 (Version 2)
Quarter: 2012Q4

REPORT INFORMATION
  Report Type: 
  Country: US (occurrence: US)
  Receive Date: 20121102
  Receipt Date: 20121108
  Transmission Date: 20130627
  Serious: Yes (Hospitalization, Other)
  Sender: FDA-Public Use
  Company Number: PHEH2012US019351

PATIENT
  Age: 64 Year
  Sex: Male

DRUGS (7)
  1. GILENYA [Suspect]
     Indication: MULTIPLE SCLEROSIS
     Dosage: 0.5 mg, QD
     Route: 048
     Dates: start: 20120608
  2. GILENYA [Suspect]
     Dosage: 0.5 mg, QD
     Route: 048
     Dates: start: 20120730, end: 20121102
  3. ADDERALL XR [Concomitant]
     Dosage: 20 mg, QD
     Route: 048
  4. JANUMET [Concomitant]
     Dosage: 1 DF, QH
     Route: 048
  5. LISINOPRIL [Concomitant]
     Dosage: 20 mg, QD
     Route: 048
  6. NAMENDA [Concomitant]
     Dosage: 10 mg, BID
     Route: 048
  7. VESICARE [Concomitant]
     Dosage: 5 mg, QID
     Route: 048

REACTIONS (5)
  - Pneumonia aspiration [Recovering/Resolving]
  - Aspiration [Unknown]
  - Heart rate decreased [Recovered/Resolved]
  - Asthenia [Recovering/Resolving]
  - Multiple sclerosis relapse [Unknown]
